FAERS Safety Report 6369206-9 (Version None)
Quarter: 2009Q3

REPORT INFORMATION
  Report Type: 
  Country: None (occurrence: None)
  Receive Date: 20090916
  Receipt Date: 20090908
  Transmission Date: 20100115
  Serious: Yes (Other)
  Sender: FDA-Public Use
  Company Number: ADR20292009

PATIENT
  Age: 27 Year
  Sex: Male

DRUGS (2)
  1. RISPERIDONE [Suspect]
     Indication: SCHIZOPHRENIA
     Dosage: ORAL
     Route: 048
  2. RISPERDAL CONSTA [Concomitant]

REACTIONS (3)
  - EXCESSIVE EYE BLINKING [None]
  - IMPAIRED WORK ABILITY [None]
  - VISUAL ACUITY REDUCED [None]
